FAERS Safety Report 9093177 (Version 2)
Quarter: 2013Q1

REPORT INFORMATION
  Report Type: Spontaneous
  Country: US (occurrence: US)
  Receive Date: 20130201
  Receipt Date: 20130221
  Transmission Date: 20140127
  Serious: Yes (Hospitalization, Other)
  Sender: FDA-Public Use
  Company Number: PHEH2013US002646

PATIENT
  Age: 48 Year
  Sex: Female
  Weight: 116.1 kg

DRUGS (15)
  1. GILENYA [Suspect]
     Indication: MULTIPLE SCLEROSIS
     Dosage: 0.5 MG, QD
     Route: 048
     Dates: start: 20110805
  2. ALBUTEROL [Concomitant]
  3. BUPROPION [Concomitant]
  4. IBUPROFEN [Concomitant]
  5. LORATADIN [Concomitant]
  6. LORAZEPAM [Concomitant]
  7. MELOXICAM [Concomitant]
  8. PERCOCET [Concomitant]
  9. PANTOPRAZOLE [Concomitant]
  10. QVAR [Concomitant]
  11. SERTRALINE [Concomitant]
  12. TAMIFLU [Concomitant]
  13. TRAZODONE [Concomitant]
  14. TRIAMTERENE AND HYDROCHLOROTHIAZIDE [Concomitant]
  15. VIT D3 [Concomitant]

REACTIONS (4)
  - Asthma [Recovering/Resolving]
  - Dyspnoea [Recovered/Resolved]
  - Blood glucose increased [Recovered/Resolved]
  - Influenza like illness [Recovering/Resolving]
